FAERS Safety Report 14495324 (Version 1)
Quarter: 2018Q1

REPORT INFORMATION
  Report Type: Spontaneous
  Country: US (occurrence: US)
  Receive Date: 20180206
  Receipt Date: 20180206
  Transmission Date: 20180509
  Serious: No
  Sender: FDA-Public Use
  Company Number: US-SMITH AND NEPHEW, INC-2017SMT00206

PATIENT
  Age: 71 Year
  Sex: Male
  Weight: 92.97 kg

DRUGS (6)
  1. ZANTAC [Concomitant]
     Active Substance: RANITIDINE HYDROCHLORIDE
  2. GAVISCON [Concomitant]
     Active Substance: ALUMINUM HYDROXIDE\MAGNESIUM CARBONATE
  3. COREG [Concomitant]
     Active Substance: CARVEDILOL
  4. REGRANEX [Suspect]
     Active Substance: BECAPLERMIN
     Indication: WOUND
     Dosage: UNK, 1X/DAY FOR 12 HOURS ON AND 12 HOURS OFF
     Route: 061
     Dates: start: 20170228, end: 20170311
  5. CLINDAMYCIN. [Suspect]
     Active Substance: CLINDAMYCIN
     Indication: WOUND
     Dosage: 300 MG, 3X/DAY
     Dates: start: 20170323
  6. REGRANEX [Suspect]
     Active Substance: BECAPLERMIN
     Dosage: UNK, 1X/DAY FOR 12 HOUR ON AND 12 HOURS OFF
     Route: 061
     Dates: start: 20170324

REACTIONS (4)
  - Liver function test increased [Unknown]
  - Application site dryness [Recovered/Resolved]
  - Wound infection bacterial [Recovering/Resolving]
  - Skin maceration [Recovering/Resolving]

NARRATIVE: CASE EVENT DATE: 2017
